FAERS Safety Report 6396794-9 (Version None)
Quarter: 2009Q4

REPORT INFORMATION
  Report Type: 
  Country: None (occurrence: None)
  Receive Date: 20091012
  Receipt Date: 20090813
  Transmission Date: 20100525
  Serious: No
  Sender: FDA-Public Use
  Company Number: US-ASTRAZENECA-2009SE08022

PATIENT
  Age: 70 Year
  Sex: Female

DRUGS (4)
  1. SYMBICORT [Suspect]
     Indication: CHRONIC OBSTRUCTIVE PULMONARY DISEASE
     Dosage: 320 MCG
     Route: 055
     Dates: start: 20090701, end: 20090715
  2. SYMBICORT [Suspect]
     Dosage: 160/4.5 2 PUFFS TOTAL DOSE OF 640 MCG
     Route: 055
     Dates: start: 20090716
  3. SPIRIVA [Concomitant]
  4. BONIVA [Concomitant]

REACTIONS (1)
  - NAIL DISORDER [None]
